FAERS Safety Report 5779028-5 (Version None)
Quarter: 2008Q2

REPORT INFORMATION
  Report Type: 
  Country: None (occurrence: None)
  Receive Date: 20080619
  Receipt Date: 20080617
  Transmission Date: 20081010
  Serious: Yes (Other)
  Sender: FDA-Public Use
  Company Number: US-ASTRAZENECA-2008UW11423

PATIENT
  Age: 73 Year
  Sex: Female

DRUGS (9)
  1. PULMICORT [Suspect]
     Route: 055
  2. DIOVAN [Concomitant]
  3. METOPROLOL [Concomitant]
     Route: 048
  4. AZITHROMYCIN [Concomitant]
  5. PREDNISONE TAB [Concomitant]
  6. ANTIBIOTICS [Concomitant]
  7. ALBUTEROL [Concomitant]
  8. INSULIN INSULATARD NPH NORDISK [Concomitant]
     Dosage: 40-50 UNITS TWICE DAILY
  9. INSULIN [Concomitant]

REACTIONS (1)
  - BLOOD GLUCOSE INCREASED [None]
